FAERS Safety Report 25995200 (Version 1)
Quarter: 2025Q4

REPORT INFORMATION
  Report Type: Spontaneous
  Country: US (occurrence: None)
  Receive Date: 20251103
  Receipt Date: 20251103
  Transmission Date: 20260117
  Serious: Yes (Hospitalization, Other)
  Sender: FDA-CTU
  Company Number: None

PATIENT
  Age: 45 Year
  Sex: Female
  Weight: 157.5 kg

DRUGS (2)
  1. BENZEDREX [Suspect]
     Active Substance: PROPYLHEXEDRINE
     Indication: Drug abuse
     Dosage: OTHER FREQUENCY : 7-8 TIMES PER DAY;?
     Route: 048
  2. Depakote- mood stabilizer [Concomitant]

REACTIONS (8)
  - Drug abuse [None]
  - Psychotic disorder [None]
  - Wrong technique in product usage process [None]
  - Incorrect dose administered [None]
  - Amphetamines positive [None]
  - Homeless [None]
  - Brain injury [None]
  - Substance-induced psychotic disorder [None]

NARRATIVE: CASE EVENT DATE: 20250927
